FAERS Safety Report 9449088 (Version 1)
Quarter: 2013Q3

REPORT INFORMATION
  Report Type: Spontaneous
  Country: MX (occurrence: MX)
  Receive Date: 20130808
  Receipt Date: 20130808
  Transmission Date: 20140515
  Serious: Yes (Other)
  Sender: FDA-Public Use
  Company Number: MX-PFIZER INC-2013227715

PATIENT
  Age: 75 Year
  Sex: 0

DRUGS (1)
  1. PREMARIN CREMA V [Suspect]

REACTIONS (4)
  - Vaginal haemorrhage [Unknown]
  - Application site pain [Unknown]
  - Oedema [Unknown]
  - Feeling hot [Unknown]
